FAERS Safety Report 19313377 (Version 1)
Quarter: 2021Q2

REPORT INFORMATION
  Report Type: Spontaneous
  Country: US (occurrence: US)
  Receive Date: 20210527
  Receipt Date: 20210527
  Transmission Date: 20210717
  Serious: No
  Sender: FDA-Public Use
  Company Number: US-AUROBINDO-AUR-APL-2021-007929

PATIENT
  Sex: Female

DRUGS (1)
  1. AZELASTINE HYDROCHLORIDE NASAL SPRAY [Suspect]
     Active Substance: AZELASTINE HYDROCHLORIDE
     Indication: EAR DISCOMFORT
     Dosage: TWO TIMES A DAY
     Route: 065
     Dates: start: 20210128, end: 20210131

REACTIONS (4)
  - Product leakage [Unknown]
  - Product container issue [Unknown]
  - Product use in unapproved indication [Unknown]
  - Drug ineffective [Unknown]
